FAERS Safety Report 10548841 (Version 2)
Quarter: 2015Q1

REPORT INFORMATION
  Report Type: Spontaneous
  Country: FR (occurrence: FR)
  Receive Date: 20141028
  Receipt Date: 20150316
  Transmission Date: 20150720
  Serious: Yes (Hospitalization)
  Sender: FDA-Public Use
  Company Number: FR-ASTRAZENECA-2014SE80253

PATIENT
  Age: 2805 Week
  Sex: Male

DRUGS (9)
  1. EUPANTOL [Concomitant]
     Active Substance: PANTOPRAZOLE SODIUM
     Indication: GASTRITIS
     Route: 048
     Dates: end: 20140906
  2. TAHOR [Concomitant]
     Active Substance: ATORVASTATIN CALCIUM
     Indication: DYSLIPIDAEMIA
     Route: 048
  3. INEXIUM [Suspect]
     Active Substance: ESOMEPRAZOLE
     Indication: GASTRITIS
     Route: 048
     Dates: start: 20140906, end: 20140913
  4. KARDEGIC [Concomitant]
     Active Substance: ASPIRIN LYSINE
     Route: 048
  5. INSULIN THERAPY [Concomitant]
     Route: 058
  6. CAPTOPRIL. [Concomitant]
     Active Substance: CAPTOPRIL
     Route: 048
  7. METFORMIN (NON AZ DRUG) [Suspect]
     Active Substance: METFORMIN HYDROCHLORIDE
     Indication: DIABETES MELLITUS
     Route: 048
     Dates: start: 20140911, end: 20140913
  8. IKOREL [Concomitant]
     Active Substance: NICORANDIL
     Route: 048
     Dates: end: 201409
  9. INSULIN THERAPY [Concomitant]
     Route: 058
     Dates: start: 20140911

REACTIONS (1)
  - Toxic skin eruption [Recovered/Resolved]

NARRATIVE: CASE EVENT DATE: 20140913
